FAERS Safety Report 7746926-2 (Version None)
Quarter: 2011Q3

REPORT INFORMATION
  Report Type: 
  Country: None (occurrence: None)
  Receive Date: 20110913
  Receipt Date: 20110830
  Transmission Date: 20111222
  Serious: Yes (Disabling, Other)
  Sender: FDA-Public Use
  Company Number: PHHY2011MX78444

PATIENT
  Age: 53 Year
  Sex: Male

DRUGS (4)
  1. TECNISONA [Concomitant]
     Indication: ARTHRITIS
     Dosage: 2 DF DAILY
     Dates: start: 20110401
  2. GLUCOSAMINE W/CHONDROITIN [Concomitant]
     Indication: ARTHRALGIA
     Dosage: 2 DF DAILY
     Dates: start: 20110701
  3. ESBELTEX [Concomitant]
     Dosage: 2 DF DAILY
  4. DIOVAN HCT [Suspect]
     Indication: HYPERTENSION
     Dosage: 1 DF (160/12.5MG) DAILY
     Dates: start: 20110701

REACTIONS (5)
  - ARTHRALGIA [None]
  - PAIN [None]
  - BEDRIDDEN [None]
  - BONE PAIN [None]
  - DIPLEGIA [None]
